FAERS Safety Report 8161624-1 (Version None)
Quarter: 2012Q1

REPORT INFORMATION
  Report Type: 
  Country: None (occurrence: None)
  Receive Date: 20120224
  Receipt Date: 20120220
  Transmission Date: 20120608
  Serious: Yes (Death, Hospitalization)
  Sender: FDA-Public Use
  Company Number: FR-PFIZER INC-2012043105

PATIENT
  Age: 51 Year
  Sex: Male
  Weight: 69 kg

DRUGS (3)
  1. OXYCONTIN [Concomitant]
     Indication: ANALGESIC THERAPY
     Dosage: 30 MG, UNK
     Route: 048
     Dates: start: 20120101
  2. CRIZOTINIB [Suspect]
     Indication: NON-SMALL CELL LUNG CANCER STAGE IV
     Dosage: 250 MG, 2X/DAY
     Route: 048
     Dates: start: 20120131, end: 20120216
  3. OXYCODONE HCL [Concomitant]
     Indication: ANALGESIC THERAPY
     Dosage: 5 UNK, UNK
     Route: 048
     Dates: start: 20120101

REACTIONS (3)
  - LUNG DISORDER [None]
  - DISEASE PROGRESSION [None]
  - NON-SMALL CELL LUNG CANCER STAGE IV [None]
